FAERS Safety Report 17339451 (Version 4)
Quarter: 2020Q1

REPORT INFORMATION
  Report Type: Spontaneous
  Country: NZ (occurrence: NZ)
  Receive Date: 20200129
  Receipt Date: 20200310
  Transmission Date: 20200409
  Serious: Yes (Hospitalization)
  Sender: FDA-Public Use
  Company Number: NZ-MYLANLABS-2020M1009653

PATIENT
  Age: 54 Year
  Sex: Male

DRUGS (1)
  1. CLOZARIL [Suspect]
     Active Substance: CLOZAPINE
     Indication: SCHIZOPHRENIA
     Dosage: UNK
     Route: 048
     Dates: start: 19931026

REACTIONS (8)
  - Haematocrit decreased [Recovering/Resolving]
  - White blood cell count increased [Unknown]
  - Lymphocyte count decreased [Not Recovered/Not Resolved]
  - Red blood cell count decreased [Recovering/Resolving]
  - Platelet count increased [Unknown]
  - Neutrophil count increased [Unknown]
  - Hospitalisation [Unknown]
  - Mean cell haemoglobin concentration decreased [Not Recovered/Not Resolved]

NARRATIVE: CASE EVENT DATE: 20200116
